FAERS Safety Report 11100686 (Version 2)
Quarter: 2015Q2

REPORT INFORMATION
  Report Type: Spontaneous
  Country: JP (occurrence: JP)
  Receive Date: 20150508
  Receipt Date: 20150612
  Transmission Date: 20150821
  Serious: Yes (Other)
  Sender: FDA-Public Use
  Company Number: JP-ABBVIE-15P-087-1388422-00

PATIENT
  Age: 40 Year
  Sex: Female
  Weight: 45 kg

DRUGS (9)
  1. LOXOPROFEN [Concomitant]
     Active Substance: LOXOPROFEN
     Indication: PRODUCT USED FOR UNKNOWN INDICATION
     Dates: start: 20150220
  2. FAMOTIDINE. [Concomitant]
     Active Substance: FAMOTIDINE
     Indication: PRODUCT USED FOR UNKNOWN INDICATION
     Dates: start: 20150320, end: 20150327
  3. BENZALIN [Concomitant]
     Active Substance: NITRAZEPAM
     Indication: PRODUCT USED FOR UNKNOWN INDICATION
  4. PAXIL [Concomitant]
     Active Substance: PAROXETINE HYDROCHLORIDE
     Indication: PRODUCT USED FOR UNKNOWN INDICATION
  5. PYRETHIA [Concomitant]
     Active Substance: PROMETHAZINE HYDROCHLORIDE
     Indication: PRODUCT USED FOR UNKNOWN INDICATION
  6. LEUPLIN [Suspect]
     Active Substance: LEUPROLIDE ACETATE
     Indication: UTERINE LEIOMYOMA
     Route: 058
     Dates: start: 20150220, end: 20150417
  7. MAGLAX [Concomitant]
     Active Substance: MAGNESIUM OXIDE
     Indication: PRODUCT USED FOR UNKNOWN INDICATION
     Dates: start: 20150320, end: 20150402
  8. SULPIRIDE [Concomitant]
     Active Substance: SULPIRIDE
     Indication: PRODUCT USED FOR UNKNOWN INDICATION
  9. SEPAZON [Concomitant]
     Active Substance: CLOXAZOLAM
     Indication: PRODUCT USED FOR UNKNOWN INDICATION

REACTIONS (4)
  - Lymphocyte count decreased [Recovering/Resolving]
  - White blood cell count decreased [Recovering/Resolving]
  - Neutrophil count decreased [Recovering/Resolving]
  - Platelet count decreased [Recovering/Resolving]
